FAERS Safety Report 4365318-X (Version None)
Quarter: 2004Q2

REPORT INFORMATION
  Report Type: 
  Country: None (occurrence: None)
  Receive Date: 20040520
  Receipt Date: 20040512
  Transmission Date: 20050107
  Serious: Yes (Other)
  Sender: FDA-Public Use
  Company Number: 2004020605

PATIENT
  Age: 63 Year
  Sex: Male
  Weight: 86.1834 kg

DRUGS (2)
  1. LIPITOR [Suspect]
     Indication: VASCULAR CALCIFICATION
     Dosage: 20 MG (1 IN 1 D)
     Dates: start: 20000101, end: 20040201
  2. ACETYLSALICYLIC ACID SRT [Concomitant]

REACTIONS (3)
  - EXCESSIVE EXERCISE [None]
  - MYALGIA [None]
  - SPINAL COLUMN STENOSIS [None]
